FAERS Safety Report 16178514 (Version 3)
Quarter: 2019Q2

REPORT INFORMATION
  Report Type: Spontaneous
  Country: US (occurrence: US)
  Receive Date: 20190410
  Receipt Date: 20190522
  Transmission Date: 20190711
  Serious: No
  Sender: FDA-Public Use
  Company Number: PHEH2019US015075

PATIENT
  Sex: Female

DRUGS (2)
  1. AFINITOR [Suspect]
     Active Substance: EVEROLIMUS
     Indication: RENAL CANCER
     Dosage: 5 MG, QD
     Route: 048
  2. LENVATINIB [Suspect]
     Active Substance: LENVATINIB
     Indication: RENAL CANCER
     Dosage: 18 MG, QD
     Route: 048

REACTIONS (14)
  - Nausea [Recovered/Resolved]
  - Blood pressure increased [Unknown]
  - Urinary tract infection [Recovered/Resolved]
  - Vulvovaginal pruritus [Unknown]
  - Sensitive skin [Unknown]
  - Gastritis [Recovered/Resolved]
  - Anxiety [Recovered/Resolved]
  - Lip blister [Unknown]
  - Decreased appetite [Unknown]
  - Drug ineffective [Unknown]
  - Oral mucosal blistering [Unknown]
  - Dehydration [Recovered/Resolved]
  - Vomiting [Recovered/Resolved]
  - Abdominal pain [Unknown]
